FAERS Safety Report 24005368 (Version 1)
Quarter: 2024Q2

REPORT INFORMATION
  Report Type: Spontaneous
  Country: AT (occurrence: AT)
  Receive Date: 20240624
  Receipt Date: 20240624
  Transmission Date: 20240716
  Serious: Yes (Hospitalization, Other)
  Sender: FDA-Public Use
  Company Number: AT-009507513-2406AUT003084

PATIENT
  Age: 64 Year
  Sex: Female

DRUGS (3)
  1. PACLITAXEL [Suspect]
     Active Substance: PACLITAXEL
     Indication: Triple negative breast cancer
     Dosage: 4 CYCLES IN COMBINATION WITH PEMBROLIZUMAB
     Dates: end: 202311
  2. CARBOPLATIN [Suspect]
     Active Substance: CARBOPLATIN
     Indication: Triple negative breast cancer
     Dosage: 4 CYCLES IN COMBINATION WITH PEMBROLIZUMAB
     Dates: end: 202311
  3. PEMBROLIZUMAB [Suspect]
     Active Substance: PEMBROLIZUMAB
     Indication: Triple negative breast cancer
     Dosage: UNK?FOA: SOLUTION FOR INJECTION
     Dates: end: 202311

REACTIONS (5)
  - Type 2 diabetes mellitus [Unknown]
  - Hypertriglyceridaemia [Unknown]
  - Immune-mediated endocrinopathy [Unknown]
  - Radiotherapy [Unknown]
  - Hypercholesterolaemia [Unknown]

NARRATIVE: CASE EVENT DATE: 20230101
